FAERS Safety Report 6168541-7 (Version None)
Quarter: 2009Q2

REPORT INFORMATION
  Report Type: 
  Country: None (occurrence: None)
  Receive Date: 20090427
  Receipt Date: 20090420
  Transmission Date: 20091009
  Serious: Yes (Death, Other)
  Sender: FDA-Public Use
  Company Number: B0571552A

PATIENT
  Age: 33 Year
  Sex: Female

DRUGS (9)
  1. ZIDOVUDINE [Suspect]
     Indication: HIV INFECTION
  2. LAMIVUDINE [Suspect]
     Indication: HIV INFECTION
  3. TRIMETHOPRIM + SULFAMETHOXAZOLE [Suspect]
  4. INDINIVIR SULFATE [Suspect]
     Indication: HIV INFECTION
  5. STAVUDINE [Suspect]
     Indication: HIV INFECTION
  6. DIDANOSINE [Suspect]
     Indication: HIV INFECTION
  7. NELFINAVIR [Suspect]
     Indication: HIV INFECTION
  8. SAQUINAVIR [Concomitant]
     Indication: HIV INFECTION
  9. RITONAVIR [Concomitant]
     Indication: HIV INFECTION

REACTIONS (22)
  - ANAEMIA [None]
  - ASPERGILLOMA [None]
  - ASPERGILLOSIS [None]
  - CHEST PAIN [None]
  - CHEST X-RAY ABNORMAL [None]
  - COMPUTERISED TOMOGRAM ABNORMAL [None]
  - CONDITION AGGRAVATED [None]
  - COUGH [None]
  - LEUKOPENIA [None]
  - LYMPHADENOPATHY [None]
  - OESOPHAGEAL CANDIDIASIS [None]
  - ORAL CANDIDIASIS [None]
  - PARAESTHESIA [None]
  - PARAPARESIS [None]
  - PNEUMONIA [None]
  - PRODUCTIVE COUGH [None]
  - PYREXIA [None]
  - SINUSITIS [None]
  - SPUTUM ABNORMAL [None]
  - TACHYPNOEA [None]
  - URINARY INCONTINENCE [None]
  - WEIGHT DECREASED [None]
